FAERS Safety Report 5322278-2 (Version None)
Quarter: 2007Q2

REPORT INFORMATION
  Report Type: 
  Country: None (occurrence: None)
  Receive Date: 20070511
  Receipt Date: 20070509
  Transmission Date: 20071010
  Serious: Yes (Disabling)
  Sender: FDA-Public Use
  Company Number: A0650610A

PATIENT
  Sex: Male

DRUGS (3)
  1. LAMICTAL [Suspect]
     Indication: BIPOLAR DISORDER
     Dosage: 100MG PER DAY
     Route: 048
     Dates: start: 20070201
  2. LITHIUM CARBONATE [Suspect]
     Indication: BIPOLAR DISORDER
     Dosage: 900 PER DAY
     Route: 048
     Dates: start: 19970101
  3. LITHIUM CARBONATE [Concomitant]

REACTIONS (4)
  - APTYALISM [None]
  - DRY MOUTH [None]
  - GLOSSITIS [None]
  - TONGUE PARALYSIS [None]
